FAERS Safety Report 21389962 (Version 1)
Quarter: 2022Q3

REPORT INFORMATION
  Report Type: Spontaneous
  Country: DE (occurrence: None)
  Receive Date: 20220929
  Receipt Date: 20220929
  Transmission Date: 20221027
  Serious: Yes (Hospitalization)
  Sender: FDA-Public Use
  Company Number: 2022A324300

PATIENT
  Age: 45 Year
  Sex: Female

DRUGS (2)
  1. QUETIAPINE [Suspect]
     Active Substance: QUETIAPINE
     Dosage: 50 MG, 0-0-1-0, TABLET
     Route: 048
  2. MELPERONE [Suspect]
     Active Substance: MELPERONE
     Dosage: 25 MG, NEED, TABLETS
     Route: 048

REACTIONS (3)
  - Tachycardia [Unknown]
  - Nausea [Unknown]
  - Malaise [Unknown]
